FAERS Safety Report 11982964 (Version 1)
Quarter: 2016Q1

REPORT INFORMATION
  Report Type: Spontaneous
  Country: US (occurrence: US)
  Receive Date: 20160201
  Receipt Date: 20160201
  Transmission Date: 20160526
  Serious: No
  Sender: FDA-Public Use
  Company Number: US-WATSON-2015-22864

PATIENT
  Sex: Female
  Weight: 79 kg

DRUGS (15)
  1. PREDNISONE (WATSON LABORATORIES) [Suspect]
     Active Substance: PREDNISONE
     Indication: RHEUMATOID ARTHRITIS
     Dosage: 2.5 MG, DAILY
     Route: 048
  2. CELEBREX [Concomitant]
     Active Substance: CELECOXIB
     Indication: RHEUMATOID ARTHRITIS
     Dosage: 200 MG, BID
     Route: 048
     Dates: start: 1990, end: 2014
  3. MULTIVITAMIN                       /07504101/ [Concomitant]
     Active Substance: VITAMINS
     Indication: PRODUCT USED FOR UNKNOWN INDICATION
     Dosage: UNK UNK, DAILY
     Route: 065
  4. CALCIUM [Concomitant]
     Active Substance: CALCIUM
     Indication: PRODUCT USED FOR UNKNOWN INDICATION
     Dosage: 2 DF, DAILY
  5. XELJANZ [Concomitant]
     Active Substance: TOFACITINIB CITRATE
     Indication: RHEUMATOID ARTHRITIS
     Dosage: 5 MG, BID
     Route: 048
     Dates: start: 201409
  6. FISH OIL [Concomitant]
     Active Substance: FISH OIL
     Indication: PRODUCT USED FOR UNKNOWN INDICATION
     Dosage: UNK, UNKNOWN
     Route: 065
  7. VITAMIN B12 [Concomitant]
     Active Substance: CYANOCOBALAMIN
     Indication: PRODUCT USED FOR UNKNOWN INDICATION
     Dosage: 2500 MG, DAILY
     Route: 065
  8. PREDNISONE (WATSON LABORATORIES) [Suspect]
     Active Substance: PREDNISONE
     Indication: INFLAMMATION
     Dosage: 5 MG, DAILY
     Route: 048
  9. PREDNISONE (WATSON LABORATORIES) [Suspect]
     Active Substance: PREDNISONE
     Indication: RHEUMATOID ARTHRITIS
     Dosage: ON AND OFF AS NEEDED/TAPERED DOSE
     Route: 048
  10. GABAPENTIN. [Concomitant]
     Active Substance: GABAPENTIN
     Indication: SCIATICA
     Dosage: 300 MG, DAILY
     Route: 065
     Dates: start: 201306
  11. VITAMIN D3 [Concomitant]
     Active Substance: CHOLECALCIFEROL
     Indication: PRODUCT USED FOR UNKNOWN INDICATION
     Dosage: 2000 IU, UNKNOWN
     Route: 065
  12. LEFLUNOMIDE. [Concomitant]
     Active Substance: LEFLUNOMIDE
     Indication: RHEUMATOID ARTHRITIS
     Dosage: 20 MG, DAILY
     Route: 065
     Dates: end: 2013
  13. OXYCODONE [Concomitant]
     Active Substance: OXYCODONE
     Indication: BACK PAIN
     Dosage: 1 DF (5/325MG), DAILY AS NEEDED
     Route: 065
     Dates: start: 201306
  14. TOVIAZ [Concomitant]
     Active Substance: FESOTERODINE FUMARATE
     Indication: HYPERTONIC BLADDER
     Dosage: 8 MG, DAILY
     Route: 065
     Dates: start: 201501
  15. CRANBERRY                          /01512301/ [Concomitant]
     Active Substance: CRANBERRY
     Indication: PRODUCT USED FOR UNKNOWN INDICATION
     Dosage: 500 MG, UNKNOWN
     Route: 065

REACTIONS (2)
  - Adverse drug reaction [Unknown]
  - Drug ineffective [Unknown]
